FAERS Safety Report 21369746 (Version 1)
Quarter: 2022Q3

REPORT INFORMATION
  Report Type: Spontaneous
  Country: US (occurrence: US)
  Receive Date: 20220923
  Receipt Date: 20220923
  Transmission Date: 20221027
  Serious: No
  Sender: FDA-Public Use
  Company Number: US-BRISTOL-MYERS SQUIBB COMPANY-2022-032056

PATIENT
  Age: 85 Year
  Sex: Male

DRUGS (2)
  1. REVLIMID [Suspect]
     Active Substance: LENALIDOMIDE
     Indication: Plasma cell myeloma
     Route: 048
     Dates: start: 20210708
  2. REVLIMID [Suspect]
     Active Substance: LENALIDOMIDE
     Indication: Plasma cell myeloma in remission
     Dosage: FREQ: MD ADVISED TAKE REVLIMID  1EVERY OTHER DAY -HAS ENOUGH FOR 25DAYS  AND MD TO LOWER  DOSE TO  5
     Route: 048
     Dates: start: 20210708

REACTIONS (2)
  - Neutrophil count decreased [Unknown]
  - Off label use [Unknown]
